FAERS Safety Report 21909542 (Version 2)
Quarter: 2023Q1

REPORT INFORMATION
  Report Type: Spontaneous
  Country: US (occurrence: US)
  Receive Date: 20230125
  Receipt Date: 20230316
  Transmission Date: 20230417
  Serious: No
  Sender: FDA-Public Use
  Company Number: US-PFIZER INC-202300017899

PATIENT
  Age: 69 Year
  Sex: Female

DRUGS (1)
  1. PREMARIN [Suspect]
     Active Substance: ESTROGENS, CONJUGATED
     Dosage: UNK

REACTIONS (3)
  - Expired product administered [Unknown]
  - Feeling hot [Unknown]
  - Pruritus [Unknown]

NARRATIVE: CASE EVENT DATE: 20230112
